FAERS Safety Report 24384433 (Version 1)
Quarter: 2024Q4

REPORT INFORMATION
  Report Type: Report from Study
  Country: US (occurrence: US)
  Receive Date: 20241001
  Receipt Date: 20241001
  Transmission Date: 20250114
  Serious: Yes (Other)
  Sender: JOHNSON AND JOHNSON
  Company Number: US-JNJFOC-20240960097

PATIENT
  Sex: Male

DRUGS (2)
  1. ZYTIGA [Suspect]
     Active Substance: ABIRATERONE ACETATE
     Indication: Prostate cancer metastatic
     Route: 048
  2. PREDNISONE [Suspect]
     Active Substance: PREDNISONE
     Indication: Prostate cancer metastatic
     Route: 065

REACTIONS (23)
  - Pathological fracture [Unknown]
  - Hypokalaemia [Unknown]
  - Hyperbilirubinaemia [Unknown]
  - Fatigue [Unknown]
  - Bone pain [Unknown]
  - Oedema peripheral [Unknown]
  - Dizziness [Unknown]
  - Back pain [Unknown]
  - Hypertension [Unknown]
  - Hyperglycaemia [Unknown]
  - Arrhythmia supraventricular [Unknown]
  - Atrial flutter [Unknown]
  - Arthralgia [Unknown]
  - Hot flush [Unknown]
  - Muscle spasms [Unknown]
  - Constipation [Unknown]
  - Ecchymosis [Unknown]
  - Contusion [Unknown]
  - Nausea [Unknown]
  - Musculoskeletal pain [Unknown]
  - Pain in extremity [Unknown]
  - Upper respiratory tract infection [Unknown]
  - Vomiting [Unknown]
